FAERS Safety Report 17192820 (Version 1)
Quarter: 2019Q4

REPORT INFORMATION
  Report Type: Spontaneous
  Country: US (occurrence: US)
  Receive Date: 20191223
  Receipt Date: 20191223
  Transmission Date: 20200122
  Serious: No
  Sender: FDA-Public Use
  Company Number: US-SA-2019SA354273

PATIENT
  Age: 55 Year
  Sex: Female

DRUGS (1)
  1. PRALUENT [Suspect]
     Active Substance: ALIROCUMAB
     Dosage: 300 MG
     Route: 058
     Dates: start: 201910

REACTIONS (3)
  - Nausea [Unknown]
  - Pain [Unknown]
  - Influenza like illness [Unknown]

NARRATIVE: CASE EVENT DATE: 20191217
